FAERS Safety Report 14800581 (Version 1)
Quarter: 2018Q2

REPORT INFORMATION
  Report Type: Spontaneous
  Country: US (occurrence: US)
  Receive Date: 20180416
  Receipt Date: 20180416
  Transmission Date: 20180711
  Serious: Yes (Hospitalization)
  Sender: FDA-Public Use
  Company Number: None

PATIENT
  Sex: Female

DRUGS (16)
  1. ACYCLOVIR. [Concomitant]
     Active Substance: ACYCLOVIR
  2. DULOXETINE. [Concomitant]
     Active Substance: DULOXETINE
  3. DOK [Concomitant]
     Active Substance: DOCUSATE SODIUM
  4. URSODIOL. [Concomitant]
     Active Substance: URSODIOL
  5. PANTOPRAZOLE [Concomitant]
     Active Substance: PANTOPRAZOLE
  6. AZITHROMYCIN ANHYDROUS. [Concomitant]
     Active Substance: AZITHROMYCIN ANHYDROUS
  7. METHYLPRED [Concomitant]
     Active Substance: METHYLPREDNISOLONE
  8. VITAMIN D [Concomitant]
     Active Substance: CHOLECALCIFEROL
  9. SIROLIMUS. [Suspect]
     Active Substance: SIROLIMUS
     Indication: STEM CELL TRANSPLANT
     Route: 048
     Dates: start: 20180302
  10. FLUTICASONE. [Concomitant]
     Active Substance: FLUTICASONE
  11. LEVOTHYROXIN [Concomitant]
     Active Substance: LEVOTHYROXINE
  12. SMZ-TMP [Concomitant]
     Active Substance: SULFAMETHOXAZOLE\TRIMETHOPRIM
  13. NOXAFIL [Concomitant]
     Active Substance: POSACONAZOLE
  14. LIDOCAINE PAD [Concomitant]
  15. MONTELUKAST [Concomitant]
     Active Substance: MONTELUKAST SODIUM
  16. PREVIDENT [Concomitant]
     Active Substance: SODIUM FLUORIDE

REACTIONS (4)
  - Back pain [None]
  - Drug dispensing error [None]
  - Incorrect dose administered [None]
  - Respiration abnormal [None]
